FAERS Safety Report 19906054 (Version 1)
Quarter: 2021Q3

REPORT INFORMATION
  Report Type: Spontaneous
  Country: US (occurrence: US)
  Receive Date: 20210930
  Receipt Date: 20210930
  Transmission Date: 20211014
  Serious: No
  Sender: FDA-Public Use
  Company Number: US-MYLANLABS-2021M1065652

PATIENT
  Sex: Female

DRUGS (1)
  1. TELMISARTAN TABLETS, USP [Suspect]
     Active Substance: TELMISARTAN
     Indication: HYPERTENSION
     Dosage: UNK

REACTIONS (2)
  - Drug ineffective [Unknown]
  - Product substitution issue [Unknown]
